FAERS Safety Report 12848767 (Version 1)
Quarter: 2016Q4

REPORT INFORMATION
  Report Type: Spontaneous
  Country: US (occurrence: US)
  Receive Date: 20161014
  Receipt Date: 20161014
  Transmission Date: 20170207
  Serious: No
  Sender: FDA-Public Use
  Company Number: US-JNJFOC-20160806650

PATIENT
  Age: 10 Month
  Sex: Male
  Weight: 9.07 kg

DRUGS (2)
  1. INFANTS TYLENOL [Suspect]
     Active Substance: ACETAMINOPHEN
     Indication: TEETHING
     Dosage: PATIENT USED DYE AND FLAVOR FREE AND ALSO USED CHERRY, AND THE GRAPE
     Route: 048
  2. INFANTS TYLENOL [Suspect]
     Active Substance: ACETAMINOPHEN
     Indication: PYREXIA
     Dosage: PATIENT USED DYE AND FLAVOR FREE AND ALSO USED CHERRY, AND THE GRAPE
     Route: 048

REACTIONS (1)
  - Rash [Unknown]
